FAERS Safety Report 19305307 (Version 1)
Quarter: 2021Q2

REPORT INFORMATION
  Report Type: Spontaneous
  Country: DE (occurrence: DE)
  Receive Date: 20210526
  Receipt Date: 20210526
  Transmission Date: 20210717
  Serious: Yes (Congenital Anomaly)
  Sender: FDA-Public Use
  Company Number: DE-ROCHE-2832380

PATIENT
  Age: 0 Day
  Sex: Female
  Weight: 3.52 kg

DRUGS (4)
  1. FIASP [Concomitant]
     Active Substance: INSULIN ASPART
     Indication: TYPE 1 DIABETES MELLITUS
     Dosage: 28 [IE/ (MAX.) ]
     Route: 064
     Dates: start: 20200209, end: 20201014
  2. LODOTRA [Suspect]
     Active Substance: PREDNISONE
     Indication: RHEUMATOID ARTHRITIS
     Dosage: 0?10 GESTATIONAL WEEK
     Route: 064
  3. TRESIBA [Concomitant]
     Active Substance: INSULIN DEGLUDEC
     Indication: TYPE 1 DIABETES MELLITUS
     Dosage: 0?35.3 GESTATIONAL WEEK
     Route: 064
     Dates: start: 20200209, end: 20201014
  4. TOCILIZUMAB. [Suspect]
     Active Substance: TOCILIZUMAB
     Indication: RHEUMATOID ARTHRITIS
     Dosage: 0?18 GESTATIONAL WEEK
     Route: 064

REACTIONS (6)
  - Premature baby [Unknown]
  - Newborn persistent pulmonary hypertension [Recovered/Resolved]
  - Ventricular septal defect [Unknown]
  - Foetal exposure during pregnancy [Unknown]
  - Hyperbilirubinaemia neonatal [Recovered/Resolved]
  - Atrial septal defect [Unknown]

NARRATIVE: CASE EVENT DATE: 20201014
